FAERS Safety Report 13605715 (Version 2)
Quarter: 2017Q3

REPORT INFORMATION
  Report Type: Report from Study
  Country: US (occurrence: US)
  Receive Date: 20170602
  Receipt Date: 20170802
  Transmission Date: 20171127
  Serious: Yes (Hospitalization)
  Sender: FDA-Public Use
  Company Number: US-SHIRE-US201711517

PATIENT
  Age: 49 Year
  Sex: Female

DRUGS (2)
  1. CINRYZE [Suspect]
     Active Substance: HUMAN C1-ESTERASE INHIBITOR
     Indication: PROPHYLAXIS
     Dosage: UNK, OTHER (48 VIALS FOR 30 DAYS)
     Route: 042
     Dates: start: 20160302
  2. CINRYZE [Suspect]
     Active Substance: HUMAN C1-ESTERASE INHIBITOR
     Indication: HEREDITARY ANGIOEDEMA
     Dosage: 2000 IU, 3X A WEEK
     Route: 042
     Dates: start: 20150427

REACTIONS (2)
  - Hereditary angioedema [Recovered/Resolved]
  - Poor venous access [Recovering/Resolving]

NARRATIVE: CASE EVENT DATE: 20170322
